FAERS Safety Report 17639504 (Version 1)
Quarter: 2020Q2

REPORT INFORMATION
  Report Type: Spontaneous
  Country: US (occurrence: US)
  Receive Date: 20200407
  Receipt Date: 20200407
  Transmission Date: 20200713
  Serious: No
  Sender: FDA-Public Use
  Company Number: US-VERTEX PHARMACEUTICALS-2020-006665

PATIENT
  Age: 19 Year
  Sex: Male

DRUGS (6)
  1. TRIKAFTA [Suspect]
     Active Substance: ELEXACAFTOR\IVACAFTOR\TEZACAFTOR
     Indication: CYSTIC FIBROSIS
     Dosage: 2 TABS(100 MG ELEXACAFTOR/ 50 MG TEZACAFTOR/ 75 MG IVACAFTOR)  AM; 1  TAB (150MG IVACAFTOR) PM
     Route: 048
     Dates: start: 202003
  2. HYPERSAL [Concomitant]
     Active Substance: SODIUM CHLORIDE
  3. PULMOZYME [Concomitant]
     Active Substance: DORNASE ALFA
  4. SINGULAIR [Concomitant]
     Active Substance: MONTELUKAST SODIUM
  5. ENZYME DIGEST [Concomitant]
  6. ALBUTEROL HFA [Concomitant]
     Active Substance: ALBUTEROL SULFATE

REACTIONS (5)
  - Oropharyngeal discomfort [Recovering/Resolving]
  - Pyrexia [Recovering/Resolving]
  - Feeling cold [Not Recovered/Not Resolved]
  - Wheezing [Recovering/Resolving]
  - Back pain [Recovering/Resolving]

NARRATIVE: CASE EVENT DATE: 202003
